FAERS Safety Report 9969006 (Version 1)
Quarter: 2014Q1

REPORT INFORMATION
  Report Type: Report from Study
  Country: US (occurrence: US)
  Receive Date: 20140306
  Receipt Date: 20140306
  Transmission Date: 20141002
  Serious: No
  Sender: FDA-Public Use
  Company Number: US-ABBVIE-13P-163-1141934-00

PATIENT
  Age: 56 Year
  Sex: Female

DRUGS (8)
  1. HUMIRA [Suspect]
     Indication: CROHN^S DISEASE
     Dosage: MONDAY
     Route: 058
     Dates: start: 20130617
  2. LEVOTHYROXINE [Concomitant]
     Indication: HYPOTHYROIDISM
     Dosage: 150MCG DAILY
     Route: 048
  3. IRON [Concomitant]
     Indication: ANAEMIA
     Dosage: DAILY
     Route: 048
  4. RESCUE INHALER [Concomitant]
     Indication: ASTHMA
  5. METOPROLOL [Concomitant]
     Indication: HYPERTENSION
     Dosage: 50MG DAILY
     Route: 048
  6. LOSARTAN [Concomitant]
     Indication: HYPERTENSION
     Dosage: 100MG DAILY
     Route: 048
  7. HCTZ [Concomitant]
     Indication: HYPERTENSION
     Dosage: 12.5MG DAILY
     Route: 048
  8. AZATHIOPRINE [Concomitant]
     Indication: CROHN^S DISEASE
     Dosage: 50MG DAILY
     Route: 048

REACTIONS (1)
  - Drug ineffective [Recovering/Resolving]
